FAERS Safety Report 10659267 (Version 1)
Quarter: 2014Q4

REPORT INFORMATION
  Report Type: Spontaneous
  Country: US (occurrence: None)
  Receive Date: 20141216
  Receipt Date: 20141216
  Transmission Date: 20150529
  Serious: Yes (Hospitalization)
  Sender: FDA-Public Use
  Company Number: None

PATIENT
  Age: 77 Year
  Sex: Male
  Weight: 61.1 kg

DRUGS (6)
  1. RITUXIMAB (MOAB C2B8 ANTI CD20, CHIMERIC) [Suspect]
     Active Substance: RITUXIMAB
     Dates: end: 20141118
  2. ALBUTEROL. [Concomitant]
     Active Substance: ALBUTEROL
  3. SYMBICORT [Concomitant]
     Active Substance: BUDESONIDE\FORMOTEROL FUMARATE DIHYDRATE
  4. BENDAMUSTINE HYDROCHLORIDE [Suspect]
     Active Substance: BENDAMUSTINE HYDROCHLORIDE
     Dates: end: 20141120
  5. LIISINOPRIL [Concomitant]
     Active Substance: LISINOPRIL
  6. OMEGA-3 ACID SUPPLEMEN [Concomitant]

REACTIONS (7)
  - Dyspnoea exertional [None]
  - Joint swelling [None]
  - Cardiac failure congestive [None]
  - Supraventricular extrasystoles [None]
  - Sinus tachycardia [None]
  - Electrocardiogram T wave inversion [None]
  - Wheezing [None]

NARRATIVE: CASE EVENT DATE: 20141214
